FAERS Safety Report 4775846-0 (Version None)
Quarter: 2005Q3

REPORT INFORMATION
  Report Type: 
  Country: None (occurrence: None)
  Receive Date: 20050922
  Receipt Date: 20050815
  Transmission Date: 20060218
  Serious: Yes (Hospitalization)
  Sender: FDA-Public Use
  Company Number: 200512353JP

PATIENT
  Age: 51 Year
  Sex: Male
  Weight: 72.5 kg

DRUGS (6)
  1. TAXOTERE [Suspect]
     Indication: PROSTATE CANCER
     Dosage: DOSE: THE 1ST COURSE
     Route: 041
     Dates: start: 20050318, end: 20050729
  2. PREDNISOLONE [Concomitant]
     Indication: PROSTATE CANCER
     Route: 048
     Dates: start: 20050318
  3. GASTER [Concomitant]
     Route: 048
  4. VOLTAREN [Concomitant]
     Route: 048
  5. CRAVIT [Concomitant]
     Indication: UPPER RESPIRATORY TRACT INFECTION
     Route: 048
     Dates: start: 20050812
  6. VOLTAREN SUPPOSITORIEN [Concomitant]
     Route: 054

REACTIONS (9)
  - ABDOMINAL DISTENSION [None]
  - ANORECTAL DISORDER [None]
  - BLADDER DISORDER [None]
  - BREAST MASS [None]
  - DEHYDRATION [None]
  - HYPOAESTHESIA [None]
  - METASTASES TO SPINE [None]
  - NASOPHARYNGITIS [None]
  - SENSORY DISTURBANCE [None]
